FAERS Safety Report 4368591-7 (Version None)
Quarter: 2004Q2

REPORT INFORMATION
  Report Type: 
  Country: None (occurrence: None)
  Receive Date: 20040528
  Receipt Date: 20040520
  Transmission Date: 20050107
  Serious: No
  Sender: FDA-Public Use
  Company Number: 2004UW10648

PATIENT
  Sex: Female

DRUGS (1)
  1. CRESTOR [Suspect]
     Dosage: 10 MG QOD PO
     Route: 048
     Dates: start: 20040301

REACTIONS (4)
  - DYSPEPSIA [None]
  - JAUNDICE [None]
  - OCULAR ICTERUS [None]
  - STOMACH DISCOMFORT [None]
